FAERS Safety Report 16269188 (Version 1)
Quarter: 2019Q2

REPORT INFORMATION
  Report Type: Spontaneous
  Country: SI (occurrence: SI)
  Receive Date: 20190503
  Receipt Date: 20190503
  Transmission Date: 20190711
  Serious: Yes (Hospitalization)
  Sender: FDA-Public Use
  Company Number: SI-ASTRAZENECA-2019SE64284

PATIENT
  Sex: Male

DRUGS (1)
  1. FASENRA [Suspect]
     Active Substance: BENRALIZUMAB
     Dosage: 30.0MG UNKNOWN
     Route: 058

REACTIONS (2)
  - Malaise [Unknown]
  - Dyspnoea [Unknown]

NARRATIVE: CASE EVENT DATE: 201904
